FAERS Safety Report 5023383-0 (Version None)
Quarter: 2006Q2

REPORT INFORMATION
  Report Type: 
  Country: None (occurrence: None)
  Receive Date: 20060606
  Receipt Date: 20060522
  Transmission Date: 20061013
  Serious: Yes (Other)
  Sender: FDA-Public Use
  Company Number: HQWYE520024MAY06

PATIENT
  Age: 38 Year
  Sex: Male

DRUGS (13)
  1. EFFEXOR [Suspect]
     Indication: MAJOR DEPRESSION
     Dosage: 37.5 MG 1X PER 1 DAY; ORAL (SEE IMAGE)
     Route: 048
     Dates: start: 19980101, end: 19980101
  2. EFFEXOR [Suspect]
     Indication: SOCIAL PHOBIA
     Dosage: 37.5 MG 1X PER 1 DAY; ORAL (SEE IMAGE)
     Route: 048
     Dates: start: 19980101, end: 19980101
  3. EFFEXOR [Suspect]
     Indication: MAJOR DEPRESSION
     Dosage: 37.5 MG 1X PER 1 DAY; ORAL (SEE IMAGE)
     Route: 048
     Dates: start: 19990101, end: 19990101
  4. EFFEXOR [Suspect]
     Indication: SOCIAL PHOBIA
     Dosage: 37.5 MG 1X PER 1 DAY; ORAL (SEE IMAGE)
     Route: 048
     Dates: start: 19990101, end: 19990101
  5. EFFEXOR [Suspect]
     Indication: MAJOR DEPRESSION
     Dosage: 37.5 MG 1X PER 1 DAY; ORAL (SEE IMAGE)
     Route: 048
     Dates: start: 19970101
  6. EFFEXOR [Suspect]
     Indication: SOCIAL PHOBIA
     Dosage: 37.5 MG 1X PER 1 DAY; ORAL (SEE IMAGE)
     Route: 048
     Dates: start: 19970101
  7. EFFEXOR [Suspect]
     Indication: MAJOR DEPRESSION
     Dosage: 37.5 MG 1X PER 1 DAY; ORAL (SEE IMAGE)
     Route: 048
     Dates: start: 19980101
  8. EFFEXOR [Suspect]
     Indication: SOCIAL PHOBIA
     Dosage: 37.5 MG 1X PER 1 DAY; ORAL (SEE IMAGE)
     Route: 048
     Dates: start: 19980101
  9. EFFEXOR [Suspect]
     Indication: MAJOR DEPRESSION
     Dosage: 37.5 MG 1X PER 1 DAY; ORAL (SEE IMAGE)
     Route: 048
     Dates: start: 19990101
  10. EFFEXOR [Suspect]
     Indication: SOCIAL PHOBIA
     Dosage: 37.5 MG 1X PER 1 DAY; ORAL (SEE IMAGE)
     Route: 048
     Dates: start: 19990101
  11. EFFEXOR XR [Suspect]
     Dosage: SELF MEDICATING WITH VARIOUS DOSES MAXIMUM DOSE 900 MG DAILY; ORAL, 600 MG 1X PER 1 DAY; ORAL
     Route: 048
     Dates: start: 20060522
  12. CLONAZEPAM [Concomitant]
  13. POLARAMINE REPETABS (DEXCHLORPHENIRAMINE MALEATE) [Concomitant]

REACTIONS (13)
  - DRUG ABUSER [None]
  - DRUG DEPENDENCE [None]
  - DRUG INEFFECTIVE [None]
  - FATIGUE [None]
  - HYPERTENSION [None]
  - INCORRECT DOSE ADMINISTERED [None]
  - INSOMNIA [None]
  - INTENTIONAL OVERDOSE [None]
  - MIDDLE INSOMNIA [None]
  - MOOD ALTERED [None]
  - PRURITUS [None]
  - SEDATION [None]
  - SELF-MEDICATION [None]
